FAERS Safety Report 9768196 (Version 2)
Quarter: 2013Q4

REPORT INFORMATION
  Report Type: Report from Study
  Country: JP (occurrence: JP)
  Receive Date: 20131217
  Receipt Date: 20131217
  Transmission Date: 20140711
  Serious: Yes (Hospitalization)
  Sender: FDA-Public Use
  Company Number: JP-SA-THYM-1003928

PATIENT
  Age: 37 Year
  Sex: Female
  Weight: 47 kg

DRUGS (15)
  1. THYMOGLOBULIN [Suspect]
     Indication: APLASTIC ANAEMIA
     Dosage: 150 MG, QD, 5 DOSES
     Route: 065
     Dates: start: 20120919, end: 20120923
  2. NEORAL [Suspect]
     Indication: APLASTIC ANAEMIA
     Dosage: UNK
     Route: 065
     Dates: start: 20120919
  3. DEFERASIROX [Suspect]
     Indication: APLASTIC ANAEMIA
     Dosage: UNK
     Route: 065
     Dates: start: 20121120, end: 20130214
  4. DEFERASIROX [Suspect]
     Indication: PROPHYLAXIS
     Dosage: UNK
     Route: 065
     Dates: start: 20121120, end: 20130214
  5. ITRACONAZOLE [Concomitant]
     Indication: ANTIFUNGAL PROPHYLAXIS
     Dosage: UNK
     Dates: start: 20120918
  6. OMEPRAZOLE [Concomitant]
     Indication: PROPHYLAXIS AGAINST GASTROINTESTINAL ULCER
     Dosage: UNK
     Dates: start: 20120915, end: 20130110
  7. LEVOFLOXACIN [Concomitant]
     Indication: ANTIBIOTIC PROPHYLAXIS
     Dosage: UNK
     Dates: start: 20120919
  8. BAKTAR [Concomitant]
     Indication: ANTIFUNGAL PROPHYLAXIS
     Dosage: UNK
     Dates: start: 20120905
  9. RABEPRAZOLE SODIUM [Concomitant]
     Indication: PROPHYLAXIS AGAINST GASTROINTESTINAL ULCER
     Dosage: 10 MG, UNK
     Dates: start: 20130111
  10. CHLORPHENAMINE MALEATE [Concomitant]
     Indication: PROPHYLAXIS
     Dosage: 6 MG, UNK
     Dates: start: 20120919, end: 20120923
  11. PREDNISOLONE [Concomitant]
     Indication: PROPHYLAXIS
     Dosage: UNK
     Dates: start: 20120924, end: 20121026
  12. METENOLONE ACETATE [Concomitant]
     Indication: APLASTIC ANAEMIA
     Dosage: 5 MG, UNK
     Dates: start: 20130125
  13. METHYLPREDNISOLONE SODIUM SUCCINATE [Concomitant]
     Indication: PROPHYLAXIS
     Dosage: DOSE: 125
     Dates: start: 20120919, end: 20120923
  14. CHLORPHENAMINE MALEATE [Concomitant]
     Indication: PROPHYLAXIS
     Dosage: UNK
     Dates: start: 20121031
  15. LENOGRASTIM [Concomitant]
     Indication: APLASTIC ANAEMIA
     Dosage: 250 MCG, UNK
     Dates: start: 20120911

REACTIONS (5)
  - Febrile neutropenia [Recovered/Resolved]
  - Escherichia sepsis [Recovered/Resolved]
  - Hypoalbuminaemia [Recovered/Resolved]
  - Peripheral sensory neuropathy [Recovered/Resolved]
  - Oesophagitis [Recovered/Resolved]
